FAERS Safety Report 10716803 (Version 1)
Quarter: 2015Q1

REPORT INFORMATION
  Report Type: Spontaneous
  Country: US (occurrence: None)
  Receive Date: 20150115
  Receipt Date: 20150115
  Transmission Date: 20150721
  Serious: Yes (Disabling)
  Sender: FDA-Public Use
  Company Number: None

PATIENT
  Age: 68 Year
  Sex: Female
  Weight: 66.68 kg

DRUGS (1)
  1. WELCHOL [Suspect]
     Active Substance: COLESEVELAM HYDROCHLORIDE
     Indication: BLOOD CHOLESTEROL INCREASED
     Dosage: 1 PACKET
     Route: 048
     Dates: start: 20140531, end: 20141214

REACTIONS (5)
  - Musculoskeletal stiffness [None]
  - Lymphadenopathy [None]
  - Muscle injury [None]
  - Skeletal injury [None]
  - Oropharyngeal pain [None]

NARRATIVE: CASE EVENT DATE: 20141214
